FAERS Safety Report 5216493-6 (Version None)
Quarter: 2006Q4

REPORT INFORMATION
  Report Type: 
  Country: None (occurrence: None)
  Receive Date: 20061129
  Receipt Date: 20050222
  Transmission Date: 20070319
  Serious: Yes (Death, Hospitalization)
  Sender: FDA-Public Use
  Company Number: 2004UW22004

PATIENT
  Age: 71 Year
  Sex: Female
  Weight: 106.1417 kg

DRUGS (5)
  1. FASLODEX [Suspect]
     Indication: BREAST CANCER METASTATIC
     Dosage: 250 MG IM
     Route: 030
     Dates: start: 20040831
  2. PROCRIT [Concomitant]
  3. TRIAMTERENE AND HYDROCHLOROTHIAZIDE [Concomitant]
  4. COUMADIN [Concomitant]
  5. TOPROL-XL [Concomitant]

REACTIONS (2)
  - DISEASE PROGRESSION [None]
  - RASH [None]
